FAERS Safety Report 24975170 (Version 1)
Quarter: 2025Q1

REPORT INFORMATION
  Report Type: Spontaneous
  Country: NL (occurrence: NL)
  Receive Date: 20250217
  Receipt Date: 20250217
  Transmission Date: 20250408
  Serious: No
  Sender: ORGANON
  Company Number: NL-ORGANON-O2502NLD000739

PATIENT
  Sex: Female

DRUGS (1)
  1. ETONOGESTREL [Suspect]
     Active Substance: ETONOGESTREL
     Route: 059
     Dates: start: 20241102

REACTIONS (2)
  - Eye discharge [Not Recovered/Not Resolved]
  - Ocular cyst [Not Recovered/Not Resolved]

NARRATIVE: CASE EVENT DATE: 20241102
